FAERS Safety Report 4610838-3 (Version None)
Quarter: 2005Q2

REPORT INFORMATION
  Report Type: 
  Country: None (occurrence: None)
  Receive Date: 20050303
  Receipt Date: 20041215
  Transmission Date: 20051028
  Serious: No
  Sender: FDA-Public Use
  Company Number: 200420841BWH

PATIENT
  Age: 57 Year
  Sex: Male

DRUGS (1)
  1. LEVITRA [Suspect]
     Indication: ERECTILE DYSFUNCTION

REACTIONS (1)
  - RESTLESS LEGS SYNDROME [None]
